FAERS Safety Report 4717792-4 (Version None)
Quarter: 2005Q3

REPORT INFORMATION
  Report Type: 
  Country: None (occurrence: None)
  Receive Date: 20050715
  Receipt Date: 20041006
  Transmission Date: 20060218
  Serious: Yes (Hospitalization)
  Sender: FDA-Public Use
  Company Number: 2004-00609

PATIENT
  Age: 59 Year
  Sex: Male
  Weight: 85.7 kg

DRUGS (2)
  1. INTEGRILIN [Suspect]
     Dosage: INTRAVENOUS
     Route: 042
     Dates: start: 20040917
  2. HEPARIN [Concomitant]

REACTIONS (2)
  - INJECTION SITE HAEMORRHAGE [None]
  - PLATELET COUNT DECREASED [None]
